FAERS Safety Report 7045844-5 (Version None)
Quarter: 2010Q4

REPORT INFORMATION
  Report Type: 
  Country: None (occurrence: None)
  Receive Date: 20101014
  Receipt Date: 20100924
  Transmission Date: 20110411
  Serious: Yes (Other)
  Sender: FDA-Public Use
  Company Number: PHHY2010US64108

PATIENT
  Sex: Female

DRUGS (1)
  1. GENTEAL MODERATE LUBRICANT EYE DROPS (NVO) [Suspect]
     Dosage: UNK
     Dates: start: 20100908, end: 20100915

REACTIONS (3)
  - ASTHENOPIA [None]
  - PARKINSONISM [None]
  - TIC [None]
